FAERS Safety Report 4784386-4 (Version None)
Quarter: 2005Q3

REPORT INFORMATION
  Report Type: 
  Country: None (occurrence: None)
  Receive Date: 20050928
  Receipt Date: 20050915
  Transmission Date: 20060218
  Serious: Yes (Disabling)
  Sender: FDA-Public Use
  Company Number: 2005130491

PATIENT
  Sex: Female

DRUGS (3)
  1. NORVASC [Suspect]
     Indication: ILL-DEFINED DISORDER
  2. NEXIUM [Concomitant]
  3. PRAVACHOL [Concomitant]

REACTIONS (1)
  - ADVERSE EVENT [None]
